FAERS Safety Report 8156741-6 (Version None)
Quarter: 2012Q1

REPORT INFORMATION
  Report Type: 
  Country: None (occurrence: None)
  Receive Date: 20120222
  Receipt Date: 20120216
  Transmission Date: 20120608
  Serious: Yes (Hospitalization, Other)
  Sender: FDA-Public Use
  Company Number: PL-AMGEN-POLSP2012006892

PATIENT
  Age: 68 Year
  Sex: Female
  Weight: 53 kg

DRUGS (2)
  1. CALCIUM 500+D [Concomitant]
     Dosage: UNK
     Route: 048
  2. PROLIA [Suspect]
     Indication: OSTEOPOROSIS
     Dosage: UNK UNK, ONE TIME DOSE
     Route: 058
     Dates: start: 20120111

REACTIONS (2)
  - TETANY [None]
  - HYPOCALCAEMIA [None]
